FAERS Safety Report 5691415-2 (Version None)
Quarter: 2008Q2

REPORT INFORMATION
  Report Type: 
  Country: None (occurrence: None)
  Receive Date: 20080402
  Receipt Date: 20080324
  Transmission Date: 20081010
  Serious: Yes (Other)
  Sender: FDA-Public Use
  Company Number: US-BAYER-200813951NA

PATIENT
  Age: 48 Year
  Sex: Female
  Weight: 66 kg

DRUGS (5)
  1. AVELOX [Suspect]
     Indication: DRUG USE FOR UNKNOWN INDICATION
     Route: 048
  2. CELEBREX [Concomitant]
  3. PERCOCET [Concomitant]
  4. XALATAN [Concomitant]
  5. TIMOPTIC [Concomitant]

REACTIONS (4)
  - ANAPHYLACTIC REACTION [None]
  - DYSPNOEA [None]
  - ERYTHEMA [None]
  - PRURITUS [None]
